FAERS Safety Report 6271639-6 (Version None)
Quarter: 2009Q3

REPORT INFORMATION
  Report Type: 
  Country: None (occurrence: None)
  Receive Date: 20090713
  Receipt Date: 20080630
  Transmission Date: 20100115
  Serious: Yes (Other)
  Sender: FDA-Public Use
  Company Number: 50166

PATIENT
  Sex: Female
  Weight: 66 kg

DRUGS (1)
  1. VECURONIUM BROMIDE [Suspect]
     Indication: MECHANICAL VENTILATION
     Dosage: 10 MG VIA IV INJECTION
     Route: 042
     Dates: start: 20080630

REACTIONS (1)
  - EXTRAVASATION [None]
